FAERS Safety Report 12908826 (Version 6)
Quarter: 2019Q2

REPORT INFORMATION
  Report Type: Spontaneous
  Country: US (occurrence: US)
  Receive Date: 20161103
  Receipt Date: 20190522
  Transmission Date: 20190711
  Serious: No
  Sender: FDA-Public Use
  Company Number: US-ASTRAZENECA-2016SF12482

PATIENT
  Age: 60 Year
  Sex: Female
  Weight: 57.6 kg

DRUGS (10)
  1. FARXIGA [Suspect]
     Active Substance: DAPAGLIFLOZIN PROPANEDIOL
     Indication: TYPE 2 DIABETES MELLITUS
     Route: 048
  2. FARXIGA [Suspect]
     Active Substance: DAPAGLIFLOZIN PROPANEDIOL
     Indication: TYPE 2 DIABETES MELLITUS
     Route: 048
     Dates: start: 201604
  3. PREDNISONE. [Concomitant]
     Active Substance: PREDNISONE
     Dosage: 30.0MG UNKNOWN
  4. PREDNISONE. [Concomitant]
     Active Substance: PREDNISONE
     Dosage: 40.0MG UNKNOWN
  5. PREDNISONE. [Concomitant]
     Active Substance: PREDNISONE
     Dosage: 20.0MG UNKNOWN
  6. METFORMIN [Concomitant]
     Active Substance: METFORMIN HYDROCHLORIDE
     Indication: TYPE 2 DIABETES MELLITUS
     Route: 048
     Dates: start: 2006
  7. LASIX [Concomitant]
     Active Substance: FUROSEMIDE
     Indication: FLUID RETENTION
     Dosage: 10.0MG AS REQUIRED
     Route: 048
     Dates: start: 2007
  8. SINGULAIR [Concomitant]
     Active Substance: MONTELUKAST SODIUM
     Indication: DYSPNOEA
     Route: 048
     Dates: start: 201609
  9. PREDNISONE. [Concomitant]
     Active Substance: PREDNISONE
     Dosage: 10.0MG UNKNOWN
  10. ESTROGEN [Concomitant]
     Active Substance: ESTROGENS
     Indication: ATROPHIC VULVOVAGINITIS
     Dates: start: 2017

REACTIONS (16)
  - Insomnia [Not Recovered/Not Resolved]
  - Vulvovaginitis staphylococcal [Unknown]
  - Headache [Unknown]
  - Feeling abnormal [Not Recovered/Not Resolved]
  - Glycosylated haemoglobin increased [Not Recovered/Not Resolved]
  - Vulvovaginal mycotic infection [Unknown]
  - Blood glucose increased [Not Recovered/Not Resolved]
  - Body height decreased [Not Recovered/Not Resolved]
  - Sinusitis [Not Recovered/Not Resolved]
  - Weight increased [Not Recovered/Not Resolved]
  - Urticaria [Unknown]
  - Oropharyngeal pain [Not Recovered/Not Resolved]
  - Hypoacusis [Unknown]
  - Dermatitis contact [Not Recovered/Not Resolved]
  - Vulvovaginitis streptococcal [Unknown]
  - Vulvovaginal injury [Unknown]

NARRATIVE: CASE EVENT DATE: 2016
